FAERS Safety Report 8278048-9 (Version None)
Quarter: 2012Q2

REPORT INFORMATION
  Report Type: 
  Country: None (occurrence: None)
  Receive Date: 20120412
  Receipt Date: 20120326
  Transmission Date: 20120825
  Serious: Yes (Death)
  Sender: FDA-Public Use
  Company Number: US-PFIZER INC-2012090099

PATIENT
  Sex: Female
  Weight: 72.56 kg

DRUGS (3)
  1. REMICADE [Suspect]
     Indication: RHEUMATOID ARTHRITIS
     Dosage: UNK
     Route: 042
     Dates: start: 20090101
  2. DILAUDID [Suspect]
     Indication: PAIN
     Dosage: UNK
     Route: 042
     Dates: start: 20120207, end: 20120207
  3. MORPHINE SULFATE [Suspect]
     Indication: PAIN
     Dosage: UNK
     Dates: start: 20120207, end: 20120208

REACTIONS (3)
  - MULTI-ORGAN FAILURE [None]
  - DRUG INEFFECTIVE [None]
  - SEPTIC SHOCK [None]
